FAERS Safety Report 20015968 (Version 1)
Quarter: 2021Q4

REPORT INFORMATION
  Report Type: Spontaneous
  Country: US (occurrence: None)
  Receive Date: 20211102
  Receipt Date: 20211102
  Transmission Date: 20220303
  Serious: Yes (Other)
  Sender: FDA-Public Use
  Company Number: None

PATIENT

DRUGS (1)
  1. STEGLATRO [Suspect]
     Active Substance: ERTUGLIFLOZIN PIDOLATE
     Indication: Diabetes mellitus

REACTIONS (4)
  - Gastric disorder [None]
  - Vomiting [None]
  - Asthenia [None]
  - Nasopharyngitis [None]

NARRATIVE: CASE EVENT DATE: 20211101
